FAERS Safety Report 9055297 (Version 1)
Quarter: 2013Q1

REPORT INFORMATION
  Report Type: Spontaneous
  Country: DE (occurrence: DE)
  Receive Date: 20130209
  Receipt Date: 20130209
  Transmission Date: 20140127
  Serious: Yes (Hospitalization, Other)
  Sender: FDA-Public Use
  Company Number: DE-TEVA-289130GER

PATIENT
  Age: 34 None
  Sex: Female

DRUGS (1)
  1. COPAXONE [Suspect]
     Indication: MULTIPLE SCLEROSIS
     Dates: start: 20101228, end: 20110617

REACTIONS (3)
  - Aspartate aminotransferase increased [Recovered/Resolved]
  - Acute hepatic failure [Unknown]
  - Drug-induced liver injury [Unknown]
